FAERS Safety Report 16577563 (Version 1)
Quarter: 2019Q3

REPORT INFORMATION
  Report Type: Spontaneous
  Country: MX (occurrence: MX)
  Receive Date: 20190716
  Receipt Date: 20190716
  Transmission Date: 20191004
  Serious: Yes (Other)
  Sender: FDA-Public Use
  Company Number: MX-MYLANLABS-2019M1066076

PATIENT
  Age: 44 Year
  Sex: Female

DRUGS (2)
  1. DYMISTA D [Suspect]
     Active Substance: AZELASTINE HYDROCHLORIDE\FLUTICASONE PROPIONATE
     Indication: SINUSITIS
     Dosage: 2 SPRAYS EVERY 12 HOURS
     Route: 045
     Dates: start: 20190424, end: 20190426
  2. XUZAL [Suspect]
     Active Substance: LEVOCETIRIZINE
     Indication: SINUSITIS
     Dosage: 5 MILLIGRAM
     Route: 048

REACTIONS (5)
  - Conjunctival hyperaemia [Recovered/Resolved]
  - Hypersensitivity [Recovered/Resolved]
  - Off label use [Unknown]
  - Eyelid oedema [Recovered/Resolved]
  - Hypoaesthesia oral [Recovered/Resolved]

NARRATIVE: CASE EVENT DATE: 20190424
